FAERS Safety Report 9443725 (Version 2)
Quarter: 2013Q3

REPORT INFORMATION
  Report Type: Report from Study
  Country: CN (occurrence: CN)
  Receive Date: 20130806
  Receipt Date: 20130815
  Transmission Date: 20140515
  Serious: Yes (Death, Hospitalization)
  Sender: FDA-Public Use
  Company Number: CN-TEVA-404060USA

PATIENT
  Age: 53 Year
  Sex: Male
  Weight: 89 kg

DRUGS (3)
  1. TREANDA [Suspect]
     Indication: NON-HODGKIN^S LYMPHOMA UNSPECIFIED HISTOLOGY INDOLENT
     Dosage: D1, D2 TREATMENT/21 DAY CYCLE
     Route: 042
     Dates: start: 20130407
  2. INSULIN [Concomitant]
     Indication: TYPE 2 DIABETES MELLITUS
     Dosage: 14 UNKNOWN DAILY;
     Route: 055
  3. INSULIN [Concomitant]
     Dosage: 38 UNKNOWN DAILY;
     Route: 055

REACTIONS (1)
  - Thrombocytopenia [Fatal]
